FAERS Safety Report 26008806 (Version 1)
Quarter: 2025Q4

REPORT INFORMATION
  Report Type: Spontaneous
  Country: TW (occurrence: TW)
  Receive Date: 20251106
  Receipt Date: 20251106
  Transmission Date: 20260118
  Serious: Yes (Hospitalization)
  Sender: MERCK SHARP & DOHME LLC
  Company Number: TW-009507513-2345331

PATIENT
  Age: 70 Year
  Sex: Female
  Weight: 75 kg

DRUGS (7)
  1. ZERBAXA [Suspect]
     Active Substance: CEFTOLOZANE SULFATE\TAZOBACTAM SODIUM
     Dosage: DOSE: 0.5 VIAL
     Route: 041
     Dates: start: 20250909, end: 20250930
  2. SULFAMETHOXAZOLE [Suspect]
     Active Substance: SULFAMETHOXAZOLE
     Dosage: DOSE: 2.0TAB
     Route: 048
     Dates: start: 20250903, end: 20250930
  3. NEXIUM [Concomitant]
     Active Substance: ESOMEPRAZOLE MAGNESIUM
     Dosage: DOSE: 1.0TAB
     Route: 048
  4. FUROSEMIDE [Concomitant]
     Active Substance: FUROSEMIDE
     Dosage: DOSE: 1.0 APM
  5. COLISTIMETHATE SODIUM [Concomitant]
     Active Substance: COLISTIMETHATE SODIUM
     Dosage: DOSE: 1.0 VIAL
     Route: 041
  6. K-Glu [Concomitant]
     Dosage: DOSE:1.0 BOT
     Route: 048
  7. CUBICIN [Concomitant]
     Active Substance: DAPTOMYCIN
     Dosage: DOSE: 1.0VIAL
     Route: 041

REACTIONS (2)
  - Stevens-Johnson syndrome [Recovering/Resolving]
  - Drug eruption [Recovering/Resolving]

NARRATIVE: CASE EVENT DATE: 20250930
